FAERS Safety Report 6439588-8 (Version None)
Quarter: 2009Q4

REPORT INFORMATION
  Report Type: 
  Country: None (occurrence: None)
  Receive Date: 20091113
  Receipt Date: 20091104
  Transmission Date: 20100525
  Serious: Yes (Life-Threatening, Hospitalization)
  Sender: FDA-Public Use
  Company Number: B0601779A

PATIENT
  Sex: Male
  Weight: 74 kg

DRUGS (12)
  1. ARIXTRA [Suspect]
     Indication: DRUG USE FOR UNKNOWN INDICATION
     Dosage: 7.5MG PER DAY
     Route: 058
     Dates: start: 20090218, end: 20090221
  2. CALCIPARINE [Concomitant]
     Route: 058
     Dates: start: 20090212, end: 20090218
  3. VFEND [Concomitant]
     Route: 048
  4. CINACALCET HYDROCHLORIDE [Concomitant]
     Route: 048
  5. TRILEPTAL [Concomitant]
     Route: 048
  6. ATARAX [Concomitant]
     Route: 048
  7. RIFADIN [Concomitant]
     Route: 048
  8. BACTRIM DS [Concomitant]
     Route: 048
  9. INIPOMP [Concomitant]
     Route: 048
  10. TERCIAN [Concomitant]
     Route: 048
  11. FORLAX [Concomitant]
     Route: 048
  12. METHADONE HCL [Concomitant]
     Route: 065

REACTIONS (6)
  - CARDIAC TAMPONADE [None]
  - CARDIOMEGALY [None]
  - CHEST PAIN [None]
  - HYPOTENSION [None]
  - OFF LABEL USE [None]
  - TACHYCARDIA [None]
